FAERS Safety Report 10663521 (Version 2)
Quarter: 2017Q4

REPORT INFORMATION
  Report Type: Spontaneous
  Country: IN (occurrence: IN)
  Receive Date: 20141219
  Receipt Date: 20171011
  Transmission Date: 20180320
  Serious: Yes (Other)
  Sender: FDA-Public Use
  Company Number: IN-LUPIN PHARMACEUTICALS INC.-2014-01714

PATIENT
  Age: 20 Year
  Sex: Female

DRUGS (3)
  1. TRAMADOL HYDROCHLORIDE. [Suspect]
     Active Substance: TRAMADOL HYDROCHLORIDE
     Dosage: 5?6 INJECTIONS PER DAY
     Route: 030
  2. TRAMADOL HYDROCHLORIDE. [Suspect]
     Active Substance: TRAMADOL HYDROCHLORIDE
     Dosage: UNK UNK, BID
     Route: 030
  3. TRAMADOL HYDROCHLORIDE. [Suspect]
     Active Substance: TRAMADOL HYDROCHLORIDE
     Indication: PROCEDURAL PAIN
     Dosage: 100 MG, BID
     Route: 030

REACTIONS (6)
  - Drug dependence [Unknown]
  - Injection site abscess [Unknown]
  - Injection site swelling [Unknown]
  - Prescription drug used without a prescription [Unknown]
  - Drug tolerance [Unknown]
  - Drug withdrawal syndrome [Recovering/Resolving]
